FAERS Safety Report 7493096-4 (Version None)
Quarter: 2011Q2

REPORT INFORMATION
  Report Type: 
  Country: None (occurrence: None)
  Receive Date: 20110520
  Receipt Date: 20110511
  Transmission Date: 20111010
  Serious: Yes (Hospitalization, Other)
  Sender: FDA-Public Use
  Company Number: PHHY2011JP19763

PATIENT
  Age: 62 Year
  Sex: Female

DRUGS (8)
  1. THROMBOMODULIN ALPHA [Concomitant]
  2. LIPOSOMAL AMPHOTERICIN B [Concomitant]
  3. BUSULFAN [Concomitant]
  4. METHOTREXATE [Concomitant]
  5. STEROIDS NOS [Concomitant]
  6. FLUDARABINE PHOSPHATE [Concomitant]
  7. CYCLOSPORINE [Suspect]
     Indication: ALLOGENIC BONE MARROW TRANSPLANTATION THERAPY
  8. CYCLOSPORINE [Suspect]
     Indication: PROPHYLAXIS AGAINST GRAFT VERSUS HOST DISEASE

REACTIONS (4)
  - FEBRILE NEUTROPENIA [None]
  - INFECTION [None]
  - HISTIOCYTOSIS HAEMATOPHAGIC [None]
  - PHAGOCYTOSIS [None]
